FAERS Safety Report 23487119 (Version 2)
Quarter: 2024Q2

REPORT INFORMATION
  Report Type: Spontaneous
  Country: US (occurrence: US)
  Receive Date: 20240206
  Receipt Date: 20240506
  Transmission Date: 20240716
  Serious: Yes (Other)
  Sender: FDA-Public Use
  Company Number: US-BRISTOL-MYERS SQUIBB COMPANY-2024-015896

PATIENT
  Age: 87 Year
  Sex: Female

DRUGS (1)
  1. ORENCIA [Suspect]
     Active Substance: ABATACEPT
     Indication: Product used for unknown indication
     Dosage: FREQUENCY: (1 SYRINGE) SUBCUTANEOUSLY ONCE EVERY 7 DAYS (STORE IN REFRIGERATOR IMMEDIATELY)
     Route: 058

REACTIONS (2)
  - Blindness transient [Unknown]
  - Cerebrovascular accident [Unknown]

NARRATIVE: CASE EVENT DATE: 20240121
